FAERS Safety Report 5887718-9 (Version None)
Quarter: 2008Q3

REPORT INFORMATION
  Report Type: 
  Country: None (occurrence: None)
  Receive Date: 20080916
  Receipt Date: 20080909
  Transmission Date: 20090109
  Serious: Yes (Other)
  Sender: FDA-Public Use
  Company Number: 033538

PATIENT
  Sex: Male

DRUGS (2)
  1. METOCLOPRAMIDE [Suspect]
     Dosage: ORAL
     Route: 048
     Dates: start: 20060301, end: 20070831
  2. REGLAN [Suspect]
     Dosage: ORAL
     Route: 048

REACTIONS (4)
  - AKATHISIA [None]
  - DYSTONIA [None]
  - INCORRECT DRUG ADMINISTRATION DURATION [None]
  - TARDIVE DYSKINESIA [None]
